FAERS Safety Report 7724945-X (Version None)
Quarter: 2011Q3

REPORT INFORMATION
  Report Type: 
  Country: None (occurrence: None)
  Receive Date: 20110901
  Receipt Date: 20110829
  Transmission Date: 20111222
  Serious: Yes (Other)
  Sender: FDA-Public Use
  Company Number: FR-PFIZER INC-2011096672

PATIENT
  Age: 61 Year
  Sex: Female

DRUGS (4)
  1. LAMALINE [Concomitant]
     Indication: PAIN
     Dosage: 3 DF DAILY
     Route: 048
     Dates: start: 20100315
  2. LYRICA [Suspect]
     Indication: COMPLEX REGIONAL PAIN SYNDROME
  3. LYRICA [Suspect]
     Indication: NEURALGIA
     Dosage: 75 MG, 2X/DAY
     Dates: start: 20100430, end: 20101217
  4. IMOVANE [Concomitant]
     Indication: INSOMNIA
     Dosage: 7.5 MG, 1X/DAY
     Route: 048
     Dates: start: 20100315, end: 20100706

REACTIONS (1)
  - CATARACT [None]
